FAERS Safety Report 25871776 (Version 1)
Quarter: 2025Q4

REPORT INFORMATION
  Report Type: Spontaneous
  Country: EU (occurrence: EU)
  Receive Date: 20251001
  Receipt Date: 20251001
  Transmission Date: 20260118
  Serious: Yes (Hospitalization, Other)
  Sender: MERCK SHARP & DOHME LLC
  Company Number: EU-009507513-2333674

PATIENT
  Age: 66 Year
  Sex: Male

DRUGS (10)
  1. PEMBROLIZUMAB [Suspect]
     Active Substance: PEMBROLIZUMAB
     Indication: Cholangiocarcinoma
     Dates: start: 202502
  2. PEMBROLIZUMAB [Suspect]
     Active Substance: PEMBROLIZUMAB
     Indication: Cholangiocarcinoma
     Dosage: MAINTENANCE
     Dates: start: 202509
  3. GEMCITABINE [Suspect]
     Active Substance: GEMCITABINE
     Indication: Cholangiocarcinoma
     Dates: start: 20250224
  4. GEMCITABINE [Suspect]
     Active Substance: GEMCITABINE
     Indication: Cholangiocarcinoma
     Dosage: MAINTENANCE
     Dates: start: 202509
  5. CISPLATIN [Suspect]
     Active Substance: CISPLATIN
     Indication: Cholangiocarcinoma
     Dosage: D1,D15, 21/21 DAYS
     Dates: start: 20250224
  6. TAPENTADOL [Concomitant]
     Active Substance: TAPENTADOL
  7. URSODIOL [Concomitant]
     Active Substance: URSODIOL
  8. ACETAMINOPHEN [Concomitant]
     Active Substance: ACETAMINOPHEN
  9. METAMIZOL [Concomitant]
     Active Substance: METAMIZOLE SODIUM
     Dosage: TIME INTERVAL: AS NECESSARY
  10. VILDAGLIPTIN [Concomitant]
     Active Substance: VILDAGLIPTIN

REACTIONS (8)
  - Malignant neoplasm progression [Unknown]
  - Enterococcus test positive [Unknown]
  - Cholangitis [Unknown]
  - Food intolerance [Unknown]
  - Drain placement [Unknown]
  - Catheter placement [Unknown]
  - Catheter placement [Unknown]
  - Therapy partial responder [Unknown]

NARRATIVE: CASE EVENT DATE: 20250301
